FAERS Safety Report 6960850-4 (Version None)
Quarter: 2010Q3

REPORT INFORMATION
  Report Type: 
  Country: None (occurrence: None)
  Receive Date: 20100901
  Receipt Date: 20100821
  Transmission Date: 20110219
  Serious: Yes (Other)
  Sender: FDA-Public Use
  Company Number: AU-PFIZER INC-2010106938

PATIENT
  Age: 87 Year
  Sex: Male

DRUGS (1)
  1. TRANEXAMIC ACID [Suspect]

REACTIONS (1)
  - CONVULSION [None]
